FAERS Safety Report 11603464 (Version 3)
Quarter: 2018Q3

REPORT INFORMATION
  Report Type: Report from Study
  Country: US (occurrence: US)
  Receive Date: 20151007
  Receipt Date: 20180912
  Transmission Date: 20181010
  Serious: Yes (Hospitalization)
  Sender: FDA-Public Use
  Company Number: US-ROCHE-ITM201506IM018435

PATIENT
  Sex: Male
  Weight: 90.8 kg

DRUGS (2)
  1. ESBRIET [Suspect]
     Active Substance: PIRFENIDONE
     Indication: IDIOPATHIC PULMONARY FIBROSIS
     Dosage: 3 CAPSULE ORAL THREE TIMES IN A DAY
     Route: 048
     Dates: start: 20150527
  2. ESBRIET [Suspect]
     Active Substance: PIRFENIDONE
     Route: 048
     Dates: start: 2016

REACTIONS (7)
  - Ageusia [Not Recovered/Not Resolved]
  - Decreased appetite [Unknown]
  - Thrombosis [Unknown]
  - Cerebrovascular accident [Unknown]
  - Dysgeusia [Unknown]
  - Fatigue [Unknown]
  - Weight decreased [Unknown]

NARRATIVE: CASE EVENT DATE: 2017
